FAERS Safety Report 14748814 (Version 1)
Quarter: 2018Q2

REPORT INFORMATION
  Report Type: Spontaneous
  Country: US (occurrence: US)
  Receive Date: 20180411
  Receipt Date: 20180411
  Transmission Date: 20180711
  Serious: No
  Sender: FDA-Public Use
  Company Number: US-AMGEN-USASP2017185033

PATIENT
  Age: 80 Year
  Sex: Female

DRUGS (3)
  1. PROLIA [Suspect]
     Active Substance: DENOSUMAB
     Indication: OSTEOPOROSIS POSTMENOPAUSAL
     Dosage: UNK, Q6MO
     Route: 065
  2. CALCIUM [Concomitant]
     Active Substance: CALCIUM
  3. ACTINOL [Concomitant]

REACTIONS (7)
  - Tooth disorder [Not Recovered/Not Resolved]
  - Muscle spasms [Unknown]
  - Hypertension [Unknown]
  - Tooth infection [Unknown]
  - Anaemia [Unknown]
  - Weight abnormal [Unknown]
  - Pain in jaw [Unknown]
